FAERS Safety Report 19056643 (Version 2)
Quarter: 2021Q2

REPORT INFORMATION
  Report Type: Spontaneous
  Country: JP (occurrence: JP)
  Receive Date: 20210325
  Receipt Date: 20210419
  Transmission Date: 20210717
  Serious: Yes (Hospitalization)
  Sender: FDA-Public Use
  Company Number: JP-FERRINGPH-2021FE01874

PATIENT
  Age: 81 Year
  Sex: Male
  Weight: 50 kg

DRUGS (15)
  1. GONAX [Suspect]
     Active Substance: DEGARELIX
     Indication: PROSTATE CANCER
     Dosage: 80 MG, UNKNOWN FREQUENCY
     Route: 058
     Dates: start: 20200210, end: 20201126
  2. BISOPROLOL [Concomitant]
     Active Substance: BISOPROLOL
  3. FEBURIC [Concomitant]
     Active Substance: FEBUXOSTAT
  4. SENNOSIDES. [Concomitant]
     Active Substance: SENNOSIDES
  5. CELECOXIB. [Concomitant]
     Active Substance: CELECOXIB
  6. TAMBOCOR [Concomitant]
     Active Substance: FLECAINIDE ACETATE
  7. RANMARK [Concomitant]
     Active Substance: DENOSUMAB
  8. VALSARTAN. [Concomitant]
     Active Substance: VALSARTAN
  9. MAGMITT [Concomitant]
     Active Substance: MAGNESIUM OXIDE
  10. KETOPROFEN. [Concomitant]
     Active Substance: KETOPROFEN
  11. DENOTAS [Concomitant]
     Active Substance: CALCIUM CARBONATE\CHOLECALCIFEROL\MAGNESIUM CARBONATE
  12. BICALUTAMIDE. [Concomitant]
     Active Substance: BICALUTAMIDE
  13. BEOVA [Concomitant]
  14. ARGAMATE [Concomitant]
     Active Substance: CALCIUM POLYSTYRENE SULFONATE
  15. NEXIUM [Concomitant]
     Active Substance: ESOMEPRAZOLE MAGNESIUM

REACTIONS (4)
  - Pyrexia [Recovered/Resolved]
  - Incontinence [Recovered/Resolved]
  - Vomiting [Recovered/Resolved]
  - Dysstasia [Recovered/Resolved]

NARRATIVE: CASE EVENT DATE: 20201126
